FAERS Safety Report 6806575-7 (Version None)
Quarter: 2010Q2

REPORT INFORMATION
  Report Type: 
  Country: None (occurrence: None)
  Receive Date: 20100629
  Receipt Date: 20080403
  Transmission Date: 20101027
  Serious: No
  Sender: FDA-Public Use
  Company Number: US-PFIZER INC-2008027973

PATIENT
  Sex: Male
  Weight: 84.09 kg

DRUGS (5)
  1. LIPITOR [Suspect]
     Indication: BLOOD CHOLESTEROL INCREASED
  2. VIAGRA [Suspect]
     Indication: ERECTILE DYSFUNCTION
  3. CAPTOPRIL [Concomitant]
  4. COUMADIN [Concomitant]
  5. FELODIPINE [Concomitant]

REACTIONS (4)
  - DRUG INEFFECTIVE [None]
  - FLUSHING [None]
  - MYALGIA [None]
  - NECK PAIN [None]
